FAERS Safety Report 17272005 (Version 1)
Quarter: 2020Q1

REPORT INFORMATION
  Report Type: Spontaneous
  Country: DE (occurrence: DE)
  Receive Date: 20200115
  Receipt Date: 20200115
  Transmission Date: 20200409
  Serious: Yes (Hospitalization)
  Sender: FDA-Public Use
  Company Number: DE-PFIZER INC-2018199555

PATIENT
  Age: 69 Year
  Sex: Female

DRUGS (13)
  1. PREGABALIN. [Suspect]
     Active Substance: PREGABALIN
     Dosage: 150 MG, 2X/DAY
  2. METHOTREXATE SODIUM. [Suspect]
     Active Substance: METHOTREXATE SODIUM
     Dosage: UNK, 1X/DAY
  3. PANTOPRAZOL [Concomitant]
     Active Substance: PANTOPRAZOLE SODIUM
     Dosage: 40 MG, 1X/DAY
  4. LORAZEPAM. [Suspect]
     Active Substance: LORAZEPAM
     Dosage: 2.5 MG, 1X/DAY
  5. COLECALCIFEROL [Concomitant]
     Active Substance: CHOLECALCIFEROL
     Dosage: 1000 MG, 2X/DAY
  6. SIMVASTATIN. [Concomitant]
     Active Substance: SIMVASTATIN
     Dosage: 20 MG, 1X/DAY
  7. DOXEPIN [Suspect]
     Active Substance: DOXEPIN
     Dosage: 50 MG, 1X/DAY
  8. OXYCODON [Suspect]
     Active Substance: OXYCODONE
     Dosage: 10 MG, 3X/DAY
  9. TROSPIUM [Concomitant]
     Active Substance: TROSPIUM
     Dosage: 30 MG, 1X/DAY
  10. LAMOTRIGIN [Suspect]
     Active Substance: LAMOTRIGINE
     Dosage: 25 MG, 1X/DAY
  11. METAMIZOLE [Concomitant]
     Active Substance: METAMIZOLE
     Dosage: 40 GTT, 4X/DAY
  12. CALCIUM +VIT D [Concomitant]
     Active Substance: CALCIUM\VITAMIN D
     Dosage: UNK, 1X/DAY (500/ 40 MG/I EVERY SECOND)
  13. FOLSAEURE [Concomitant]
     Active Substance: FOLIC ACID
     Dosage: 0.4 MG, WEEKLY

REACTIONS (4)
  - Fall [Unknown]
  - Drug ineffective [Unknown]
  - Dizziness [Unknown]
  - Fracture [Unknown]

NARRATIVE: CASE EVENT DATE: 20151012
